FAERS Safety Report 13748775 (Version 4)
Quarter: 2017Q3

REPORT INFORMATION
  Report Type: Report from Study
  Country: US (occurrence: US)
  Receive Date: 20170713
  Receipt Date: 20170926
  Transmission Date: 20171127
  Serious: Yes (Hospitalization)
  Sender: FDA-Public Use
  Company Number: US-ROCHE-1962310

PATIENT
  Age: 69 Year
  Sex: Male
  Weight: 102.8 kg

DRUGS (23)
  1. NORVASC [Concomitant]
     Active Substance: AMLODIPINE BESYLATE
     Route: 065
     Dates: start: 20170117
  2. ATEZOLIZUMAB. [Suspect]
     Active Substance: ATEZOLIZUMAB
     Dosage: CYCLE 2, DAY 1
     Route: 042
     Dates: start: 20170302
  3. ATEZOLIZUMAB. [Suspect]
     Active Substance: ATEZOLIZUMAB
     Dosage: CYCLE 3, DAY 1
     Route: 042
     Dates: start: 20170330
  4. CPI-444 (ADENOSINE-A2A RECEPTOR ANTAGONIST) [Suspect]
     Active Substance: INVESTIGATIONAL PRODUCT
     Dosage: CYCLE 2, DAY 1
     Route: 048
     Dates: start: 20170302
  5. FLOMAX [Concomitant]
     Active Substance: TAMSULOSIN HYDROCHLORIDE
     Route: 065
     Dates: start: 20170525
  6. ATEZOLIZUMAB. [Suspect]
     Active Substance: ATEZOLIZUMAB
     Dosage: CYCLE 2, DAY 15
     Route: 042
     Dates: start: 20170316
  7. ATEZOLIZUMAB. [Suspect]
     Active Substance: ATEZOLIZUMAB
     Dosage: CYCLE 3, DAY 15
     Route: 042
     Dates: start: 20170413
  8. CPI-444 (ADENOSINE-A2A RECEPTOR ANTAGONIST) [Suspect]
     Active Substance: INVESTIGATIONAL PRODUCT
     Indication: RENAL CELL CARCINOMA
     Dosage: CYCLE1, DAY 1
     Route: 048
     Dates: start: 20170202
  9. ATEZOLIZUMAB. [Suspect]
     Active Substance: ATEZOLIZUMAB
     Dosage: CYCLE 5, DAY 1
     Route: 042
     Dates: start: 20170525
  10. ATEZOLIZUMAB. [Suspect]
     Active Substance: ATEZOLIZUMAB
     Dosage: CYCLE 4, DAY 15
     Route: 042
     Dates: start: 20170511
  11. CPI-444 (ADENOSINE-A2A RECEPTOR ANTAGONIST) [Suspect]
     Active Substance: INVESTIGATIONAL PRODUCT
     Dosage: CYCLE 4, DAY 1
     Route: 048
     Dates: start: 20170428
  12. CPI-444 (ADENOSINE-A2A RECEPTOR ANTAGONIST) [Suspect]
     Active Substance: INVESTIGATIONAL PRODUCT
     Dosage: CYCLE 6 DAY 1
     Route: 048
     Dates: start: 20170712, end: 20170714
  13. ZOFRAN [Concomitant]
     Active Substance: ONDANSETRON HYDROCHLORIDE
     Route: 065
     Dates: start: 20170317
  14. ATEZOLIZUMAB. [Suspect]
     Active Substance: ATEZOLIZUMAB
     Dosage: CYCLE 1, DAY 14
     Route: 042
     Dates: start: 20170216
  15. ATEZOLIZUMAB. [Suspect]
     Active Substance: ATEZOLIZUMAB
     Dosage: CYCLE 4, DAY 1
     Route: 042
     Dates: start: 20170427
  16. ATEZOLIZUMAB. [Suspect]
     Active Substance: ATEZOLIZUMAB
     Dosage: CYCLE 6 DAY 1
     Route: 042
     Dates: start: 20170712
  17. CPI-444 (ADENOSINE-A2A RECEPTOR ANTAGONIST) [Suspect]
     Active Substance: INVESTIGATIONAL PRODUCT
     Dosage: CYCLE 5 DAY 1
     Route: 048
     Dates: start: 20170525, end: 20170621
  18. ATEZOLIZUMAB. [Suspect]
     Active Substance: ATEZOLIZUMAB
     Indication: RENAL CELL CARCINOMA
     Dosage: COHORT 4 C1D1 (CYCLE1, DAY 1)
     Route: 042
     Dates: start: 20170202
  19. CPI-444 (ADENOSINE-A2A RECEPTOR ANTAGONIST) [Suspect]
     Active Substance: INVESTIGATIONAL PRODUCT
     Route: 048
     Dates: start: 20170417
  20. ATEZOLIZUMAB. [Suspect]
     Active Substance: ATEZOLIZUMAB
     Dosage: CYCLE 5, DAY 15
     Route: 042
     Dates: start: 20170608
  21. CPI-444 (ADENOSINE-A2A RECEPTOR ANTAGONIST) [Suspect]
     Active Substance: INVESTIGATIONAL PRODUCT
     Dosage: CYCLE 3, DAY 1
     Route: 048
     Dates: start: 20170330, end: 20170417
  22. SUBLIMAZE [Concomitant]
     Active Substance: FENTANYL CITRATE
     Route: 065
     Dates: start: 20170317
  23. LIDOCAINE. [Concomitant]
     Active Substance: LIDOCAINE
     Route: 065
     Dates: start: 20170317

REACTIONS (1)
  - Inflammatory pain [Recovered/Resolved]

NARRATIVE: CASE EVENT DATE: 20170620
